FAERS Safety Report 6671852-X (Version None)
Quarter: 2010Q2

REPORT INFORMATION
  Report Type: 
  Country: None (occurrence: None)
  Receive Date: 20100407
  Receipt Date: 20100406
  Transmission Date: 20101027
  Serious: Yes (Other)
  Sender: FDA-Public Use
  Company Number: US-B.I. PHARMACEUTICALS,INC./RIDGEFIELD-2010-BP-03901BP

PATIENT
  Sex: Female
  Weight: 108.8 kg

DRUGS (24)
  1. AGGRENOX [Suspect]
     Indication: ARTERIAL DISORDER
     Route: 048
     Dates: start: 20091201
  2. ZYRTEC [Suspect]
     Indication: HYPERSENSITIVITY
     Dosage: 10 MG
     Route: 048
     Dates: start: 20090101
  3. GABAPENTIN [Suspect]
     Indication: DIABETIC NEUROPATHY
     Route: 048
     Dates: start: 20040101
  4. GABAPENTIN [Suspect]
     Indication: FIBROMYALGIA
  5. VICODIN [Suspect]
     Indication: ARTHRALGIA
     Route: 048
     Dates: start: 20060101
  6. ZANAFLEX [Suspect]
     Indication: MUSCLE SPASMS
     Dosage: 4 MG
     Route: 048
     Dates: start: 20090101
  7. VALSARTAN [Suspect]
     Indication: HYPERTENSION
     Dosage: 160 MG
     Route: 048
     Dates: start: 20020101
  8. BUPROPION HCL [Suspect]
     Indication: DEPRESSION
     Dosage: 300 MG
     Route: 048
  9. LOZOL [Suspect]
     Indication: FLUID RETENTION
     Dosage: 1.25 MG
     Route: 048
     Dates: start: 20020101
  10. METFORMIN [Suspect]
     Indication: DIABETES MELLITUS
     Dosage: 500 MG
     Route: 048
  11. JANUMET [Suspect]
     Indication: DIABETES MELLITUS
     Route: 048
  12. KLONOPIN [Suspect]
     Indication: ANXIETY
     Dosage: 1 MG
     Route: 048
  13. KLONOPIN [Suspect]
     Indication: PANIC ATTACK
  14. PRILOSEC [Suspect]
     Indication: GASTROOESOPHAGEAL REFLUX DISEASE
     Dosage: 40 MG
     Route: 048
  15. CARAFATE [Suspect]
     Indication: GASTROOESOPHAGEAL REFLUX DISEASE
     Dosage: 2 G
     Route: 048
  16. FLONASE [Suspect]
     Indication: HYPERSENSITIVITY
     Route: 045
  17. FLOVENT [Suspect]
     Indication: ASTHMA
     Dosage: 440 MCG
  18. VENTOLIN [Suspect]
     Indication: ASTHMA
  19. IMITREX [Suspect]
     Indication: MIGRAINE
     Route: 048
  20. NITROLINGUAL [Suspect]
     Indication: CHEST PAIN
  21. EPIPEN [Suspect]
     Indication: HYPERSENSITIVITY
     Route: 062
  22. LORTAB [Suspect]
     Indication: DRUG USE FOR UNKNOWN INDICATION
     Route: 048
  23. SIMVASTATIN [Suspect]
     Indication: DRUG USE FOR UNKNOWN INDICATION
     Route: 048
  24. MULTI-VITAMINS [Suspect]
     Indication: DRUG USE FOR UNKNOWN INDICATION
     Route: 048

REACTIONS (14)
  - ANXIETY [None]
  - ARTERIAL DISORDER [None]
  - ARTHRALGIA [None]
  - ASTHMA [None]
  - CARDIAC DISORDER [None]
  - CONDITION AGGRAVATED [None]
  - DEPRESSION [None]
  - DIABETES MELLITUS [None]
  - DIABETIC NEUROPATHY [None]
  - FIBROMYALGIA [None]
  - GASTROOESOPHAGEAL REFLUX DISEASE [None]
  - MEMORY IMPAIRMENT [None]
  - MUSCLE SPASMS [None]
  - PANIC ATTACK [None]
